FAERS Safety Report 7003263-1 (Version None)
Quarter: 2010Q3

REPORT INFORMATION
  Report Type: 
  Country: None (occurrence: None)
  Receive Date: 20100920
  Receipt Date: 20100908
  Transmission Date: 20110219
  Serious: Yes (Other)
  Sender: FDA-Public Use
  Company Number: US-PFIZER INC-2008051601

PATIENT
  Sex: Female
  Weight: 61.2 kg

DRUGS (16)
  1. CHANTIX [Suspect]
     Indication: SMOKING CESSATION THERAPY
     Dosage: 0.5 MG, 1X/DAY
     Route: 048
     Dates: start: 20080606
  2. NEXIUM [Concomitant]
     Indication: GASTROOESOPHAGEAL REFLUX DISEASE
     Dosage: 40 MG, UNK
     Route: 048
     Dates: start: 20080514
  3. NEXIUM [Concomitant]
     Dosage: UNK
  4. PREDNISONE [Concomitant]
     Indication: UPPER RESPIRATORY TRACT INFECTION
     Route: 048
     Dates: start: 20080514, end: 20080612
  5. DIAZEPAM [Concomitant]
  6. VALIUM [Concomitant]
  7. CALCIUM [Concomitant]
  8. SPIRIVA [Concomitant]
     Dosage: UNK
     Route: 049
  9. IPRATROPIUM BROMIDE [Concomitant]
  10. ALBUTEROL [Concomitant]
  11. LYRICA [Concomitant]
  12. OXYGEN [Concomitant]
     Indication: CHRONIC OBSTRUCTIVE PULMONARY DISEASE
     Dosage: 2 L, DAILY
  13. ADVAIR DISKUS 100/50 [Concomitant]
     Dosage: UNK
  14. FLONASE [Concomitant]
     Dosage: UNK
  15. VITAMIN D [Concomitant]
     Dosage: 50000 IU, UNK
  16. GABAPENTIN [Concomitant]
     Dosage: 300 MG, 1X/DAY

REACTIONS (6)
  - DEPRESSION [None]
  - GASTROOESOPHAGEAL REFLUX DISEASE [None]
  - MUSCLE SPASMS [None]
  - TENDONITIS [None]
  - UPPER RESPIRATORY TRACT INFECTION [None]
  - WEIGHT INCREASED [None]
